FAERS Safety Report 18636834 (Version 1)
Quarter: 2020Q4

REPORT INFORMATION
  Report Type: Spontaneous
  Country: FR (occurrence: FR)
  Receive Date: 20201219
  Receipt Date: 20201219
  Transmission Date: 20210114
  Serious: Yes (Other)
  Sender: FDA-Public Use
  Company Number: FR-AUROBINDO-AUR-APL-2020-061352

PATIENT
  Age: 67 Year
  Sex: Male

DRUGS (6)
  1. ACICLOVIR [Suspect]
     Active Substance: ACYCLOVIR
     Indication: ANTIVIRAL PROPHYLAXIS
     Dosage: 1.5 GRAM, ONCE A DAY
     Route: 042
     Dates: start: 20200810, end: 20200826
  2. MEROPENEM. [Suspect]
     Active Substance: MEROPENEM
     Indication: BACTERAEMIA
     Dosage: 4 GRAM, ONCE A DAY
     Route: 042
     Dates: start: 20200818, end: 20200828
  3. AMOXICILLIN. [Suspect]
     Active Substance: AMOXICILLIN
     Indication: BACTERAEMIA
     Dosage: 3 GRAM, ONCE A DAY
     Route: 048
     Dates: start: 20200806, end: 20200809
  4. CLAVULANIC ACID [Suspect]
     Active Substance: CLAVULANIC ACID
     Indication: BACTERAEMIA
     Dosage: 375 MILLIGRAM, ONCE A DAY
     Route: 048
     Dates: start: 20200806, end: 20200809
  5. DAPTOMYCINE [Suspect]
     Active Substance: DAPTOMYCIN
     Indication: BACTERAEMIA
     Dosage: 900 MILLIGRAM, ONCE A DAY
     Route: 042
     Dates: start: 20200816, end: 20200825
  6. SMOFKABIVEN [Suspect]
     Active Substance: AMINO ACIDS\DEXTROSE\ELECTROLYTES NOS\SOYBEAN OIL
     Indication: PARENTERAL NUTRITION
     Dosage: 1600 MILLILITER, ONCE A DAY
     Route: 042
     Dates: start: 202008, end: 20200827

REACTIONS (2)
  - Cholestasis [Recovering/Resolving]
  - Hepatocellular injury [Recovering/Resolving]

NARRATIVE: CASE EVENT DATE: 20200820
